FAERS Safety Report 15127239 (Version 1)
Quarter: 2018Q3

REPORT INFORMATION
  Report Type: Spontaneous
  Country: US (occurrence: US)
  Receive Date: 20180614
  Receipt Date: 20180614
  Transmission Date: 20181010
  Serious: Yes (Other)
  Sender: FDA-Public Use
  Company Number: None

PATIENT
  Age: 42 Year
  Sex: Female
  Weight: 136.5 kg

DRUGS (2)
  1. VENOFER [Suspect]
     Active Substance: IRON SUCROSE
     Indication: IRON DEFICIENCY ANAEMIA
     Dosage: ?          OTHER FREQUENCY:EVERY 7 DAYS;?
     Route: 041
     Dates: start: 20180419, end: 20180419
  2. DIPHENHYDRAMINE 25MG INJ [Concomitant]
     Dates: start: 20180419, end: 20180419

REACTIONS (2)
  - Infusion site pruritus [None]
  - Muscle spasms [None]

NARRATIVE: CASE EVENT DATE: 20180419
